FAERS Safety Report 12397413 (Version 1)
Quarter: 2016Q2

REPORT INFORMATION
  Report Type: Report from Study
  Country: BR (occurrence: BR)
  Receive Date: 20160524
  Receipt Date: 20160524
  Transmission Date: 20160815
  Serious: Yes (Other)
  Sender: FDA-Public Use
  Company Number: BR-GLAXOSMITHKLINE-BR2015GSK165622

PATIENT
  Sex: Female
  Weight: 75 kg

DRUGS (5)
  1. FRONTAL (ALPRAZOLAM) [Concomitant]
     Active Substance: ALPRAZOLAM
     Indication: SEDATION
     Dosage: 1 MG, QD
     Route: 048
  2. GARLIC TABLET [Concomitant]
     Indication: BLOOD PRESSURE MANAGEMENT
     Dosage: 1 DF, QD, TABLET
     Route: 048
  3. ISOCAR [Concomitant]
     Indication: ELECTROLYTE SUBSTITUTION THERAPY
     Dosage: 2 DF, QD, TABLET
     Route: 048
  4. FLUTICASONE FUROATE + VILANTEROL TRIFENATATE [Suspect]
     Active Substance: FLUTICASONE FUROATE\VILANTEROL TRIFENATATE
     Indication: ASTHMA
     Dosage: 1 PUFF(S), QD
     Route: 055
  5. NATRILIX (INDAPAMIDE) [Concomitant]
     Indication: BLOOD PRESSURE MANAGEMENT
     Dosage: 2.5 MG, QD
     Route: 048

REACTIONS (5)
  - Oral discomfort [Unknown]
  - Blood pressure fluctuation [Unknown]
  - Drug ineffective [Not Recovered/Not Resolved]
  - Muscle spasms [Unknown]
  - Burn oral cavity [Not Recovered/Not Resolved]
